FAERS Safety Report 10755780 (Version 5)
Quarter: 2015Q2

REPORT INFORMATION
  Report Type: Report from Study
  Country: TW (occurrence: TW)
  Receive Date: 20150202
  Receipt Date: 20150630
  Transmission Date: 20150821
  Serious: Yes (Hospitalization)
  Sender: FDA-Public Use
  Company Number: TW-EXELIXIS-XL18415005077

PATIENT
  Age: 53 Year
  Sex: Male
  Weight: 70 kg

DRUGS (5)
  1. XL184 [Suspect]
     Active Substance: CABOZANTINIB
     Dosage: 40 MG, QD
     Route: 048
     Dates: start: 20150123
  2. LOPERAMIDE [Concomitant]
     Active Substance: LOPERAMIDE
  3. DOXABAN [Concomitant]
  4. APROVEL [Concomitant]
     Active Substance: IRBESARTAN
  5. XL184 [Suspect]
     Active Substance: CABOZANTINIB
     Indication: RENAL CELL CARCINOMA
     Dosage: 60 MG, QD
     Route: 048
     Dates: start: 20141024, end: 20150102

REACTIONS (2)
  - Abdominal abscess [Recovered/Resolved]
  - Appendicitis perforated [Recovered/Resolved]

NARRATIVE: CASE EVENT DATE: 20150101
